FAERS Safety Report 6250451-8 (Version None)
Quarter: 2009Q2

REPORT INFORMATION
  Report Type: 
  Country: None (occurrence: None)
  Receive Date: 20090630
  Receipt Date: 20090624
  Transmission Date: 20091009
  Serious: Yes (Death)
  Sender: FDA-Public Use
  Company Number: PHHY2009BR25500

PATIENT
  Sex: Female

DRUGS (10)
  1. BUDESONIDE, FORMOTEROL FUMARATE [Suspect]
     Dosage: UNK
     Dates: start: 20090602
  2. BEROTEC [Concomitant]
     Dosage: 4 DRP, UNK
     Dates: start: 20090602
  3. ATROVENT [Concomitant]
     Dosage: 30 DRP, UNK
  4. AMOXICILLIN AND CLAVULANATE POTASSIUM [Concomitant]
     Indication: PNEUMONIA
     Dosage: 1 DF, TID
     Route: 048
  5. PREDNISONE TAB [Concomitant]
     Indication: PNEUMONIA
     Dosage: UNK
     Route: 048
  6. FLUIMUCIL [Concomitant]
     Dosage: UNK
  7. ANCORON [Concomitant]
     Indication: ARRHYTHMIA
     Dosage: 1 TABLET FROM MONDAY TO FRIDAY
     Route: 048
  8. CAPTOPRIL [Concomitant]
     Dosage: UNK
     Route: 048
  9. RANITIDINE [Concomitant]
     Indication: GASTRIC DISORDER
     Dosage: UNK
     Route: 048
  10. MAREVAN [Concomitant]
     Indication: ABASIA
     Dosage: 1/4 TABLET

REACTIONS (9)
  - ARRHYTHMIA [None]
  - ASTHENIA [None]
  - CARDIAC FAILURE [None]
  - COLD SWEAT [None]
  - COLON NEOPLASM [None]
  - OBESITY [None]
  - PULMONARY EMBOLISM [None]
  - RESPIRATORY FAILURE [None]
  - TACHYCARDIA [None]
